FAERS Safety Report 11196651 (Version 1)
Quarter: 2015Q2

REPORT INFORMATION
  Report Type: Spontaneous
  Country: US (occurrence: None)
  Receive Date: 20150616
  Receipt Date: 20150616
  Transmission Date: 20150821
  Serious: Yes (Other)
  Sender: FDA-Public Use
  Company Number: None

PATIENT
  Age: 70 Year
  Sex: Female
  Weight: 79.83 kg

DRUGS (3)
  1. BIOTIN [Concomitant]
     Active Substance: BIOTIN
  2. LIALDA [Suspect]
     Active Substance: MESALAMINE
     Indication: IRRITABLE BOWEL SYNDROME
     Dosage: 4 PILLS ONCE DAILY TAKEN BY MOUTH
     Route: 048
     Dates: start: 20150201, end: 20150522
  3. LEVOXYL [Concomitant]
     Active Substance: LEVOTHYROXINE SODIUM

REACTIONS (10)
  - Hair texture abnormal [None]
  - Rash [None]
  - Alopecia [None]
  - Pruritus [None]
  - Myalgia [None]
  - Back pain [None]
  - Abdominal distension [None]
  - Abdominal pain upper [None]
  - Fatigue [None]
  - Flatulence [None]

NARRATIVE: CASE EVENT DATE: 20150615
